FAERS Safety Report 9211038 (Version 1)
Quarter: 2013Q2

REPORT INFORMATION
  Report Type: Spontaneous
  Country: US (occurrence: US)
  Receive Date: 20130404
  Receipt Date: 20130404
  Transmission Date: 20140414
  Serious: Yes (Other)
  Sender: FDA-Public Use
  Company Number: US-PFIZER INC-2013059506

PATIENT
  Age: 6 Year
  Sex: Male
  Weight: 21.77 kg

DRUGS (1)
  1. CHILDREN^S DIMETAPP COLD AND ALLERGY [Suspect]
     Indication: NASOPHARYNGITIS
     Dosage: 2 TEA SPOON EVERY 4HOURS, ONCE
     Route: 048
     Dates: start: 20130212, end: 20130212

REACTIONS (5)
  - Illusion [Recovered/Resolved]
  - Hallucination [Recovered/Resolved]
  - Sleep talking [Recovered/Resolved]
  - Vision blurred [Recovered/Resolved]
  - Visual impairment [Recovered/Resolved]
